FAERS Safety Report 11150654 (Version 2)
Quarter: 2015Q2

REPORT INFORMATION
  Report Type: Spontaneous
  Country: BR (occurrence: BR)
  Receive Date: 20150601
  Receipt Date: 20150611
  Transmission Date: 20150821
  Serious: Yes (Other)
  Sender: FDA-Public Use
  Company Number: BR-ORION CORPORATION ORION PHARMA-ENT 2015-0898

PATIENT
  Sex: Male
  Weight: 61 kg

DRUGS (7)
  1. ENTARKIN [Suspect]
     Active Substance: ENTACAPONE
     Indication: PARKINSON^S DISEASE
     Dosage: STRENGTH: 200 MG
     Route: 065
  2. VENLAFAXINE HYDROCHLORIDE. [Concomitant]
     Active Substance: VENLAFAXINE HYDROCHLORIDE
     Route: 065
  3. PROLOPA DB [Concomitant]
     Route: 065
  4. AMANTADINE [Concomitant]
     Active Substance: AMANTADINE
     Route: 065
  5. PRAMIPEXOLE DIHCL [Concomitant]
     Route: 065
  6. COMTAN [Suspect]
     Active Substance: ENTACAPONE
     Indication: PARKINSON^S DISEASE
     Dosage: SRENGTH: 200 MG
     Route: 048
  7. PROLOPA HBS [Concomitant]
     Route: 065

REACTIONS (3)
  - Atrophy [Recovered/Resolved]
  - Parkinson^s disease [Not Recovered/Not Resolved]
  - Feeling abnormal [Recovered/Resolved]
